FAERS Safety Report 9543850 (Version 1)
Quarter: 2013Q3

REPORT INFORMATION
  Report Type: Spontaneous
  Country: US (occurrence: US)
  Receive Date: 20130923
  Receipt Date: 20130923
  Transmission Date: 20140515
  Serious: Yes (Death)
  Sender: FDA-Public Use
  Company Number: US-GLAXOSMITHKLINE-A1042476A

PATIENT
  Age: 54 Year
  Sex: Male

DRUGS (1)
  1. ADVAIR [Suspect]
     Indication: ASTHMA
     Route: 055
     Dates: start: 20130407

REACTIONS (5)
  - Death [Fatal]
  - Brain neoplasm malignant [Unknown]
  - Haemorrhage intracranial [Unknown]
  - Fall [Unknown]
  - Head injury [Unknown]
